FAERS Safety Report 5379721-2 (Version None)
Quarter: 2007Q3

REPORT INFORMATION
  Report Type: 
  Country: None (occurrence: None)
  Receive Date: 20070706
  Receipt Date: 20070702
  Transmission Date: 20080115
  Serious: Yes (Death)
  Sender: FDA-Public Use
  Company Number: PHEH2007US09280

PATIENT
  Age: 42 Year
  Sex: Female

DRUGS (12)
  1. EXJADE [Suspect]
     Indication: HAEMOCHROMATOSIS
     Dosage: 1000 MG, QD
     Route: 048
     Dates: start: 20060927
  2. FOLIC ACID [Concomitant]
  3. DILTIAZEM [Concomitant]
  4. DILANTIN [Concomitant]
  5. MS CONTIN [Concomitant]
  6. PROCRIT [Concomitant]
  7. TEMAZEPAM [Concomitant]
  8. VITAMIN D [Concomitant]
  9. DILAUDID [Concomitant]
  10. ARTHROTEC [Concomitant]
  11. COUMADIN [Concomitant]
  12. HYDROXYUREA [Concomitant]

REACTIONS (2)
  - SICKLE CELL ANAEMIA [None]
  - TREATMENT NONCOMPLIANCE [None]
